FAERS Safety Report 8101093-0 (Version None)
Quarter: 2012Q1

REPORT INFORMATION
  Report Type: 
  Country: None (occurrence: None)
  Receive Date: 20120129
  Receipt Date: 20110909
  Transmission Date: 20120608
  Serious: No
  Sender: FDA-Public Use
  Company Number: US-ABBOTT-11P-163-0852896-00

PATIENT
  Sex: Female
  Weight: 65.83 kg

DRUGS (3)
  1. HUMIRA [Suspect]
     Indication: PSORIASIS
     Dates: start: 20101201, end: 20110301
  2. HYDROCODONE BITARTRATE [Concomitant]
     Indication: JAW FRACTURE
  3. HYDROCODONE BITARTRATE [Concomitant]
     Indication: PAIN IN JAW

REACTIONS (5)
  - PSORIASIS [None]
  - COUGH [None]
  - PHARYNGITIS STREPTOCOCCAL [None]
  - RASH VESICULAR [None]
  - TONGUE DISCOLOURATION [None]
